FAERS Safety Report 4357208-3 (Version None)
Quarter: 2004Q2

REPORT INFORMATION
  Report Type: 
  Country: None (occurrence: None)
  Receive Date: 20040512
  Receipt Date: 20040512
  Transmission Date: 20050107
  Serious: Yes (Death)
  Sender: FDA-Public Use
  Company Number: None

PATIENT
  Sex: Male
  Weight: 86.637 kg

DRUGS (9)
  1. REMICADE [Suspect]
     Indication: RHEUMATOID ARTHRITIS
     Dosage: 500 MG EVERY 8 WE INTRAVENOUS
     Route: 042
     Dates: start: 20020823, end: 20040213
  2. METHOTREXATE [Concomitant]
  3. PREDNISONE [Concomitant]
  4. CELEBREX [Concomitant]
  5. PRILOSEC [Concomitant]
  6. TYLENOL (CAPLET) [Concomitant]
  7. ALBUTEROL [Concomitant]
  8. FOLIC ACID [Concomitant]
  9. VITAMIN C [Concomitant]

REACTIONS (1)
  - LUNG ADENOCARCINOMA [None]
